FAERS Safety Report 10173505 (Version 1)
Quarter: 2014Q2

REPORT INFORMATION
  Report Type: Spontaneous
  Country: IT (occurrence: IT)
  Receive Date: 20140515
  Receipt Date: 20140515
  Transmission Date: 20141212
  Serious: Yes (Other)
  Sender: FDA-Public Use
  Company Number: IT-009507513-1405ITA006108

PATIENT
  Age: 70 Year
  Sex: Male

DRUGS (4)
  1. REBETOL [Suspect]
     Indication: HEPATITIS C
     Dosage: 1200 MG DAILY
     Route: 048
     Dates: start: 20131120
  2. TELAPREVIR [Suspect]
     Indication: HEPATITIS C
     Dosage: 2250 MG DAILY
     Route: 048
     Dates: start: 20131120
  3. PEGASYS [Suspect]
     Indication: HEPATITIS C
     Dosage: 180 MICROGRAM WEEKLY
     Route: 058
     Dates: start: 20131120, end: 20140117
  4. PEGASYS [Suspect]
     Dosage: 135MCG QW
     Route: 058
     Dates: start: 20140117

REACTIONS (2)
  - Anaemia [Recovering/Resolving]
  - Neutropenia [Recovering/Resolving]
